FAERS Safety Report 5243581-0 (Version None)
Quarter: 2007Q1

REPORT INFORMATION
  Report Type: 
  Country: None (occurrence: None)
  Receive Date: 20070220
  Receipt Date: 20070220
  Transmission Date: 20070707
  Serious: Yes (Other)
  Sender: FDA-Public Use
  Company Number: None

PATIENT
  Age: 53 Year
  Sex: Female
  Weight: 58.514 kg

DRUGS (1)
  1. VIVELLE-DOT [Suspect]
     Indication: MENOPAUSE
     Dosage: ONE PATCH  CHANGE Q 3 DAY  TRANSDERMAL
     Route: 062
     Dates: start: 20000101, end: 20070217

REACTIONS (8)
  - BREAST TENDERNESS [None]
  - DIZZINESS [None]
  - HEADACHE [None]
  - INCORRECT DOSE ADMINISTERED [None]
  - NAUSEA [None]
  - PHARMACEUTICAL PRODUCT COMPLAINT [None]
  - SPEECH DISORDER [None]
  - THINKING ABNORMAL [None]
